FAERS Safety Report 8973047 (Version 1)
Quarter: 2012Q4

REPORT INFORMATION
  Report Type: Report from Study
  Country: US (occurrence: US)
  Receive Date: 20121218
  Receipt Date: 20121218
  Transmission Date: 20130627
  Serious: Yes (Hospitalization)
  Sender: FDA-Public Use
  Company Number: US-ROCHE-1170739

PATIENT
  Age: 56 Year
  Sex: Female
  Weight: 95.7 kg

DRUGS (2)
  1. CAPECITABINE [Suspect]
     Indication: COLORECTAL CANCER
     Route: 048
     Dates: start: 20100211, end: 20100615
  2. OXALIPLATIN [Suspect]
     Indication: COLORECTAL CANCER
     Route: 042

REACTIONS (3)
  - Full blood count decreased [Unknown]
  - Renal disorder [Unknown]
  - Infusion related reaction [Unknown]
